FAERS Safety Report 5535610-1 (Version None)
Quarter: 2007Q4

REPORT INFORMATION
  Report Type: 
  Country: None (occurrence: None)
  Receive Date: 20071119
  Receipt Date: 20070828
  Transmission Date: 20080405
  Serious: No
  Sender: FDA-Public Use
  Company Number: TPA2007A01910

PATIENT
  Age: 6 Decade
  Sex: Female

DRUGS (4)
  1. ROZEREM [Suspect]
     Dosage: PER ORAL
     Route: 048
  2. SONATA [Suspect]
  3. RESTORIL [Suspect]
  4. KLONOPIN [Suspect]

REACTIONS (1)
  - FEELING ABNORMAL [None]
